FAERS Safety Report 7080867-1 (Version None)
Quarter: 2010Q4

REPORT INFORMATION
  Report Type: 
  Country: None (occurrence: None)
  Receive Date: 20101103
  Receipt Date: 20101022
  Transmission Date: 20110411
  Serious: Yes (Other)
  Sender: FDA-Public Use
  Company Number: US-PFIZER INC-2010135577

PATIENT
  Sex: Male

DRUGS (2)
  1. LYRICA [Suspect]
     Indication: PAIN MANAGEMENT
     Dosage: 150 MG, 2X/DAY
     Route: 048
     Dates: start: 20070824
  2. LYRICA [Suspect]
     Dosage: 300MG IN MORNING AND 600MG IN EVENING

REACTIONS (8)
  - BLOOD CHOLESTEROL INCREASED [None]
  - DYSGEUSIA [None]
  - DYSPEPSIA [None]
  - HYPERTENSION [None]
  - HYPOAESTHESIA [None]
  - NAUSEA [None]
  - PARAESTHESIA [None]
  - PRODUCT QUALITY ISSUE [None]
